FAERS Safety Report 4733708-9 (Version None)
Quarter: 2005Q3

REPORT INFORMATION
  Report Type: 
  Country: None (occurrence: None)
  Receive Date: 20050729
  Receipt Date: 20050713
  Transmission Date: 20060218
  Serious: Yes (Hospitalization)
  Sender: FDA-Public Use
  Company Number: FR_050506445

PATIENT
  Age: 79 Year
  Sex: Male
  Weight: 70 kg

DRUGS (7)
  1. GEMZAR [Suspect]
     Indication: METASTASES TO BONE
     Dosage: 1000 MG/M2/1 WEEK
     Dates: start: 20050401, end: 20050421
  2. GEMZAR [Suspect]
     Indication: METASTASES TO LIVER
     Dosage: 1000 MG/M2/1 WEEK
     Dates: start: 20050401, end: 20050421
  3. GEMZAR [Suspect]
     Indication: PANCREATIC CARCINOMA
     Dosage: 1000 MG/M2/1 WEEK
     Dates: start: 20050401, end: 20050421
  4. COZAAR [Concomitant]
  5. LERCAN (LERCANIDIPINE HYDROCHLORIDE) [Concomitant]
  6. DAFLON (DIOSMIN) [Concomitant]
  7. ONDANSETRON HYDROCHLORIDE [Concomitant]

REACTIONS (2)
  - PAIN IN EXTREMITY [None]
  - PERIPHERAL ISCHAEMIA [None]
